FAERS Safety Report 9748557 (Version 1)
Quarter: 2013Q4

REPORT INFORMATION
  Report Type: Spontaneous
  Country: US (occurrence: US)
  Receive Date: 20131212
  Receipt Date: 20131212
  Transmission Date: 20140711
  Serious: Yes (Other)
  Sender: FDA-Public Use
  Company Number: US-BAYER-2013-149214

PATIENT
  Age: 27 Year
  Sex: Female

DRUGS (1)
  1. MIRENA [Suspect]
     Indication: CONTRACEPTION
     Dosage: 20 MCG/24HR, CONT
     Route: 015
     Dates: start: 20130204, end: 20131127

REACTIONS (4)
  - Genital haemorrhage [Recovered/Resolved]
  - Device dislocation [Recovered/Resolved]
  - Medical device discomfort [Recovered/Resolved]
  - Abdominal pain lower [Recovered/Resolved]
